FAERS Safety Report 8961830 (Version 5)
Quarter: 2013Q1

REPORT INFORMATION
  Report Type: Spontaneous
  Country: IE (occurrence: IE)
  Receive Date: 20121212
  Receipt Date: 20130227
  Transmission Date: 20140127
  Serious: Yes (Hospitalization, Disabling)
  Sender: FDA-Public Use
  Company Number: IE-BAYER-2012-126472

PATIENT
  Age: 44 Year
  Sex: Female

DRUGS (1)
  1. MIRENA [Suspect]
     Indication: CONTRACEPTION
     Dosage: 20 MCG/24HR, CONT
     Route: 015
     Dates: start: 201208, end: 20121128

REACTIONS (3)
  - Cerebrovascular accident [Recovered/Resolved]
  - Dysarthria [Recovered/Resolved]
  - Muscular weakness [Recovered/Resolved]
